FAERS Safety Report 23685730 (Version 1)
Quarter: 2024Q1

REPORT INFORMATION
  Report Type: Spontaneous
  Country: US (occurrence: US)
  Receive Date: 20240329
  Receipt Date: 20240329
  Transmission Date: 20240410
  Serious: Yes (Hospitalization, Other)
  Sender: FDA-Public Use
  Company Number: US-LUPIN PHARMACEUTICALS INC.-2024-02577

PATIENT
  Age: 55 Year
  Sex: Female

DRUGS (10)
  1. BUPROPION [Interacting]
     Active Substance: BUPROPION
     Indication: Bipolar I disorder
     Dosage: 150 MG, QD, BUPROPION XL
     Route: 065
  2. BUPROPION [Interacting]
     Active Substance: BUPROPION
     Dosage: 300 MG, QD
     Route: 065
  3. DEUTETRABENAZINE [Interacting]
     Active Substance: DEUTETRABENAZINE
     Indication: Product used for unknown indication
     Dosage: 12 MG, QD
     Route: 065
  4. DEUTETRABENAZINE [Interacting]
     Active Substance: DEUTETRABENAZINE
     Dosage: 24 MG, QD
     Route: 065
  5. LITHIUM [Suspect]
     Active Substance: LITHIUM
     Indication: Bipolar I disorder
     Dosage: 600 MG
     Route: 065
  6. LITHIUM [Suspect]
     Active Substance: LITHIUM
     Dosage: 900 MG
     Route: 065
  7. PROPRANOLOL [Concomitant]
     Active Substance: PROPRANOLOL HYDROCHLORIDE
     Indication: Product used for unknown indication
     Dosage: 10 MG, QD
     Route: 065
  8. PROPRANOLOL [Concomitant]
     Active Substance: PROPRANOLOL HYDROCHLORIDE
     Dosage: 20 MG, QD
     Route: 065
  9. CLOZAPINE [Concomitant]
     Active Substance: CLOZAPINE
     Indication: Bipolar I disorder
     Dosage: 100 MG, QD, IN NIGHT
     Route: 065
  10. CLOZAPINE [Concomitant]
     Active Substance: CLOZAPINE
     Dosage: 50 MG, QD, IN NIGHT
     Route: 065

REACTIONS (12)
  - Dizziness [Recovering/Resolving]
  - Ataxia [Recovering/Resolving]
  - Aphasia [Recovering/Resolving]
  - Tremor [Recovering/Resolving]
  - Dysarthria [Recovering/Resolving]
  - Confusional state [Recovering/Resolving]
  - Bradycardia [Recovering/Resolving]
  - Electrocardiogram QT prolonged [Recovering/Resolving]
  - Electrocardiogram T wave abnormal [Recovering/Resolving]
  - Hyperprolactinaemia [Recovering/Resolving]
  - Toxicity to various agents [Unknown]
  - Drug interaction [Unknown]
